FAERS Safety Report 21996392 (Version 11)
Quarter: 2024Q1

REPORT INFORMATION
  Report Type: Spontaneous
  Country: US (occurrence: US)
  Receive Date: 20230215
  Receipt Date: 20240116
  Transmission Date: 20240410
  Serious: Yes (Hospitalization, Other)
  Sender: FDA-Public Use
  Company Number: US-PFIZER INC-PV202300028400

PATIENT
  Age: 80 Year
  Sex: Female
  Weight: 71.67 kg

DRUGS (22)
  1. IBRANCE [Suspect]
     Active Substance: PALBOCICLIB
     Indication: Breast cancer female
     Dosage: DAILY FOR 21 DAYS, 7 DAYS OFF
     Route: 048
  2. IBRANCE [Suspect]
     Active Substance: PALBOCICLIB
     Indication: Breast cancer metastatic
     Dosage: 75 MG, DAILY
     Route: 048
     Dates: start: 202110, end: 20230315
  3. IBRANCE [Suspect]
     Active Substance: PALBOCICLIB
     Dosage: 125 MG, CYCLIC (125MG TABLET ONCE A DAY FOR 3 WEEKS AND OFF ONE WEEK)
     Dates: start: 20211004, end: 202303
  4. IBRANCE [Suspect]
     Active Substance: PALBOCICLIB
     Dosage: 100 MG
     Dates: start: 20220103
  5. IBRANCE [Suspect]
     Active Substance: PALBOCICLIB
     Dosage: 75 MG
     Dates: start: 202303, end: 20230329
  6. IBRANCE [Suspect]
     Active Substance: PALBOCICLIB
     Dosage: UNK, DAILY
     Route: 048
     Dates: start: 20211004, end: 202303
  7. IBRANCE [Suspect]
     Active Substance: PALBOCICLIB
     Dosage: 75 ML, ONCE A DAY
     Dates: start: 20211004, end: 20230320
  8. ASPIRIN [Concomitant]
     Active Substance: ASPIRIN
     Dosage: UNK
  9. CHOLECALCIFEROL [Concomitant]
     Active Substance: CHOLECALCIFEROL
     Dosage: UNK
  10. CLONIDINE [Concomitant]
     Active Substance: CLONIDINE
     Dosage: UNK
  11. HALOBETASOL PROPIONATE [Concomitant]
     Active Substance: HALOBETASOL PROPIONATE
     Dosage: UNK
  12. IPRATROPIUM BROMIDE [Concomitant]
     Active Substance: IPRATROPIUM BROMIDE\IPRATROPIUM BROMIDE ANHYDROUS
     Dosage: UNK
     Route: 045
  13. LATANOPROST [Concomitant]
     Active Substance: LATANOPROST
     Dosage: UNK
  14. LOSARTAN [Concomitant]
     Active Substance: LOSARTAN
     Dosage: UNK
  15. OMEPRAZOLE [Concomitant]
     Active Substance: OMEPRAZOLE
     Dosage: UNK
  16. ONDANSETRON [Concomitant]
     Active Substance: ONDANSETRON
     Dosage: UNK, AS NEEDED
  17. PROPAFENONE [Concomitant]
     Active Substance: PROPAFENONE
     Dosage: UNK
  18. TIMOLOL [Concomitant]
     Active Substance: TIMOLOL
     Dosage: UNK
  19. VITAMIN C [Concomitant]
     Active Substance: ASCORBIC ACID
     Dosage: UNK
  20. XGEVA [Concomitant]
     Active Substance: DENOSUMAB
     Dosage: UNK
  21. SELENIUM [Concomitant]
     Active Substance: SELENIUM
     Dosage: UNK
  22. LETROZOLE [Concomitant]
     Active Substance: LETROZOLE
     Indication: Breast cancer
     Dosage: UNK
     Dates: start: 20211004, end: 20220311

REACTIONS (26)
  - Arthralgia [Recovered/Resolved]
  - Blood pressure abnormal [Recovered/Resolved]
  - Cancer pain [Not Recovered/Not Resolved]
  - Cholesteatoma [Not Recovered/Not Resolved]
  - Dry skin [Recovered/Resolved]
  - Deafness [Not Recovered/Not Resolved]
  - Ear pain [Recovered/Resolved]
  - Ear infection [Not Recovered/Not Resolved]
  - Glossitis [Recovered/Resolved]
  - Neutropenia [Not Recovered/Not Resolved]
  - Movement disorder [Recovered/Resolved]
  - Infection [Not Recovered/Not Resolved]
  - Skin disorder [Recovered/Resolved]
  - Urinary tract infection [Recovered/Resolved]
  - White blood cell count decreased [Recovered/Resolved]
  - Stomatitis [Recovered/Resolved]
  - Rash [Recovered/Resolved]
  - Hair texture abnormal [Recovered/Resolved]
  - Fatigue [Not Recovered/Not Resolved]
  - Pain [Not Recovered/Not Resolved]
  - Pain in extremity [Not Recovered/Not Resolved]
  - Neck pain [Not Recovered/Not Resolved]
  - Arthralgia [Not Recovered/Not Resolved]
  - Myalgia [Not Recovered/Not Resolved]
  - Cough [Recovered/Resolved]
  - Dry mouth [Not Recovered/Not Resolved]

NARRATIVE: CASE EVENT DATE: 20211001
